FAERS Safety Report 12414925 (Version 2)
Quarter: 2016Q2

REPORT INFORMATION
  Report Type: Spontaneous
  Country: CN (occurrence: CN)
  Receive Date: 20160530
  Receipt Date: 20160610
  Transmission Date: 20160815
  Serious: No
  Sender: FDA-Public Use
  Company Number: CN-009507513-1503CHN010033

PATIENT
  Age: 62 Year
  Sex: Male
  Weight: 105 kg

DRUGS (24)
  1. TRAMADOL HYDROCHLORIDE. [Concomitant]
     Active Substance: TRAMADOL HYDROCHLORIDE
     Dosage: TOTAL DAILY DOSE: 300 MG, Q8H
     Route: 048
     Dates: start: 20150206, end: 20150210
  2. MOSAPRIDE [Concomitant]
     Active Substance: MOSAPRIDE
     Dosage: TOTAL DAILY DOSE: 15MG, FREQUENCY:TID
     Route: 048
     Dates: start: 20150211, end: 20150224
  3. PANTOPRAZOLE [Concomitant]
     Active Substance: PANTOPRAZOLE SODIUM
     Indication: PROPHYLAXIS AGAINST GASTROINTESTINAL ULCER
     Dosage: 40 MG, QD
     Route: 042
     Dates: start: 20150211, end: 20150218
  4. POTASSIUM CHLORIDE. [Concomitant]
     Active Substance: POTASSIUM CHLORIDE
     Indication: ELECTROLYTE SUBSTITUTION THERAPY
     Dosage: 20 ML/CC, QD
     Route: 042
     Dates: start: 20150211, end: 20150213
  5. PYRIDOXINE [Concomitant]
     Active Substance: PYRIDOXINE
     Indication: IMMUNOMODULATORY THERAPY
     Dosage: 100 MG, QD
     Route: 042
     Dates: start: 20150211, end: 20150213
  6. CISPLATIN. [Concomitant]
     Active Substance: CISPLATIN
     Indication: CHEMOTHERAPY
     Dosage: CISPLATIN(DPP) 50 MG, D1-3; TREATMENT CYCLE 1/4~6
     Route: 042
     Dates: start: 20150211, end: 20150213
  7. GEMCITABINE [Concomitant]
     Active Substance: GEMCITABINE\GEMCITABINE HYDROCHLORIDE
     Indication: CHEMOTHERAPY
     Dosage: 2.0 G, D1, 8; TREATMENT CYCLE 1/4~6
     Route: 042
     Dates: start: 20150211, end: 20150218
  8. MINERALS (UNSPECIFIED) (+) VITAMINS (UNSPECIFIED) [Concomitant]
     Indication: ELECTROLYTE SUBSTITUTION THERAPY
     Dosage: 1 TABLET, QD
     Route: 048
     Dates: start: 20150204, end: 20150210
  9. LENTINAN [Concomitant]
     Active Substance: LENTINAN
     Dosage: 1 MG, QD
     Route: 042
     Dates: start: 20150209, end: 20150209
  10. 1-BUTYRYL-4-CINNAMYLPIPERAZINE HYDROCHLORIDE [Concomitant]
     Dosage: 2 ML, QD
     Route: 030
     Dates: start: 20150212, end: 20150216
  11. EMEND [Suspect]
     Active Substance: APREPITANT
     Dosage: 80 MG, ONCE, DAY 3
     Route: 048
     Dates: start: 20150213, end: 20150213
  12. TRAMADOL HYDROCHLORIDE. [Concomitant]
     Active Substance: TRAMADOL HYDROCHLORIDE
     Dosage: TOTAL DAILY DOSE: 300 MG, Q8H
     Route: 048
     Dates: start: 20150211, end: 20150224
  13. FUROSEMIDE. [Concomitant]
     Active Substance: FUROSEMIDE
     Indication: DIURETIC THERAPY
     Dosage: 10 MG, QD
     Route: 042
     Dates: start: 20150211, end: 20150217
  14. INSULIN [Concomitant]
     Active Substance: INSULIN NOS
     Indication: PROPHYLAXIS
     Dosage: 12 UNITS, QD
     Route: 042
     Dates: start: 20150214, end: 20150215
  15. MOSAPRIDE [Concomitant]
     Active Substance: MOSAPRIDE
     Indication: GASTROINTESTINAL DISORDER THERAPY
     Dosage: TOTAL DAILY DOSE: 15MG, FREQUENCY:TID
     Route: 048
     Dates: start: 20150209, end: 20150210
  16. TELMISARTAN. [Concomitant]
     Active Substance: TELMISARTAN
     Indication: HYPERTENSION
     Dosage: UNK, PRN
     Route: 048
     Dates: start: 2005
  17. EMEND [Suspect]
     Active Substance: APREPITANT
     Indication: PROPHYLAXIS OF NAUSEA AND VOMITING
     Dosage: 125 MG, ONCE, DAY: 1
     Route: 048
     Dates: start: 20150211, end: 20150211
  18. MINERALS (UNSPECIFIED) (+) VITAMINS (UNSPECIFIED) [Concomitant]
     Dosage: 1 TABLET, QD
     Route: 048
     Dates: start: 20150211, end: 20150212
  19. DEXAMETHASONE SODIUM PHOSPHATE. [Concomitant]
     Active Substance: DEXAMETHASONE SODIUM PHOSPHATE
     Indication: PROPHYLAXIS
     Dosage: 10 MG, QD
     Route: 042
     Dates: start: 20150209, end: 20150209
  20. EMEND [Suspect]
     Active Substance: APREPITANT
     Dosage: 80 MG, ONCE, DAY 2
     Route: 048
     Dates: start: 20150212, end: 20150212
  21. DEXAMETHASONE. [Concomitant]
     Active Substance: DEXAMETHASONE
     Indication: ANTIEMETIC SUPPORTIVE CARE
     Dosage: 10 MG, QD
     Route: 041
     Dates: start: 20150211, end: 20150213
  22. DEXAMETHASONE. [Concomitant]
     Active Substance: DEXAMETHASONE
     Dosage: 10 MG, ONCE
     Route: 041
     Dates: start: 20150218, end: 20150218
  23. AZASETRON [Concomitant]
     Active Substance: AZASETRON
     Indication: ANTIEMETIC SUPPORTIVE CARE
     Dosage: 50 MG, QD
     Route: 041
     Dates: start: 20150211, end: 20150213
  24. AZASETRON [Concomitant]
     Active Substance: AZASETRON
     Dosage: 50 MG, ONCE
     Route: 041
     Dates: start: 20150218, end: 20150218

REACTIONS (3)
  - Hypochloraemia [Recovered/Resolved]
  - Hyponatraemia [Recovered/Resolved]
  - Blood potassium increased [Recovered/Resolved]

NARRATIVE: CASE EVENT DATE: 20150214
